FAERS Safety Report 5625027-3 (Version None)
Quarter: 2008Q1

REPORT INFORMATION
  Report Type: 
  Country: None (occurrence: None)
  Receive Date: 20080208
  Receipt Date: 20080131
  Transmission Date: 20080703
  Serious: Yes (Other)
  Sender: FDA-Public Use
  Company Number: 08022402

PATIENT
  Age: 38 Year
  Sex: Female

DRUGS (1)
  1. CARBAMAZEPINE [Suspect]
     Indication: EPILEPSY
     Dosage: 200MG, BID, ORAL
     Route: 048

REACTIONS (5)
  - ABDOMINAL DISCOMFORT [None]
  - ANURIA [None]
  - MICTURITION URGENCY [None]
  - URINARY HESITATION [None]
  - URINARY INCONTINENCE [None]
